FAERS Safety Report 11316338 (Version 1)
Quarter: 2015Q3

REPORT INFORMATION
  Report Type: Report from Study
  Country: AR (occurrence: AR)
  Receive Date: 20150728
  Receipt Date: 20150728
  Transmission Date: 20151125
  Serious: Yes (Other)
  Sender: FDA-Public Use
  Company Number: AR-ROCHE-1613820

PATIENT
  Sex: Male

DRUGS (2)
  1. RANIBIZUMAB [Suspect]
     Active Substance: RANIBIZUMAB
     Dosage: 1 AMPOULE
     Route: 050
     Dates: start: 20140920, end: 20140920
  2. RANIBIZUMAB [Suspect]
     Active Substance: RANIBIZUMAB
     Indication: RETINAL DETACHMENT
     Dosage: 1 AMPOULE
     Route: 050
     Dates: start: 20130731, end: 20130731

REACTIONS (10)
  - Disease progression [Unknown]
  - Visual impairment [Not Recovered/Not Resolved]
  - Haematoma [Unknown]
  - Eye disorder [Unknown]
  - Off label use [Unknown]
  - Lacrimation increased [Recovering/Resolving]
  - Vision blurred [Not Recovered/Not Resolved]
  - Cough [Unknown]
  - Drug ineffective [Unknown]
  - Cataract [Unknown]
